FAERS Safety Report 8328373-8 (Version None)
Quarter: 2012Q2

REPORT INFORMATION
  Report Type: 
  Country: None (occurrence: None)
  Receive Date: 20120502
  Receipt Date: 20120423
  Transmission Date: 20120825
  Serious: Yes (Other)
  Sender: FDA-Public Use
  Company Number: US-ASTRAZENECA-2012SE26365

PATIENT
  Sex: Female
  Weight: 95.3 kg

DRUGS (2)
  1. ASPIRIN [Concomitant]
  2. BRILINTA [Suspect]
     Indication: BRAIN NEOPLASM
     Route: 048

REACTIONS (3)
  - TUMOUR HAEMORRHAGE [None]
  - HEMIPLEGIA [None]
  - OFF LABEL USE [None]
